FAERS Safety Report 24666420 (Version 3)
Quarter: 2025Q1

REPORT INFORMATION
  Report Type: Spontaneous
  Country: NO (occurrence: NO)
  Receive Date: 20241126
  Receipt Date: 20250115
  Transmission Date: 20250408
  Serious: Yes (Hospitalization)
  Sender: MYLAN
  Company Number: None

PATIENT
  Age: 74 Year
  Sex: Male

DRUGS (21)
  1. METOPROLOL [Interacting]
     Active Substance: METOPROLOL
     Indication: Product used for unknown indication
     Route: 048
  2. METOPROLOL [Interacting]
     Active Substance: METOPROLOL
     Route: 048
  3. METOPROLOL [Interacting]
     Active Substance: METOPROLOL
     Route: 048
  4. METOPROLOL [Interacting]
     Active Substance: METOPROLOL
     Route: 048
  5. LITHIUM SULFATE [Interacting]
     Active Substance: LITHIUM SULFATE
     Indication: Bipolar disorder
     Route: 048
  6. LITHIUM SULFATE [Interacting]
     Active Substance: LITHIUM SULFATE
     Route: 048
  7. LITHIUM SULFATE [Interacting]
     Active Substance: LITHIUM SULFATE
     Route: 048
  8. LITHIUM SULFATE [Interacting]
     Active Substance: LITHIUM SULFATE
     Route: 048
  9. AMLODIPINE [Interacting]
     Active Substance: AMLODIPINE BESYLATE
     Indication: Hypertension
     Route: 048
  10. AMLODIPINE [Interacting]
     Active Substance: AMLODIPINE BESYLATE
     Route: 048
  11. AMLODIPINE [Interacting]
     Active Substance: AMLODIPINE BESYLATE
     Route: 048
  12. AMLODIPINE [Interacting]
     Active Substance: AMLODIPINE BESYLATE
     Route: 048
  13. HYDROCHLOROTHIAZIDE\RAMIPRIL [Suspect]
     Active Substance: HYDROCHLOROTHIAZIDE\RAMIPRIL
     Indication: Product used for unknown indication
     Route: 065
  14. HYDROCHLOROTHIAZIDE\RAMIPRIL [Suspect]
     Active Substance: HYDROCHLOROTHIAZIDE\RAMIPRIL
     Route: 065
  15. HYDROCHLOROTHIAZIDE\RAMIPRIL [Suspect]
     Active Substance: HYDROCHLOROTHIAZIDE\RAMIPRIL
     Route: 065
  16. HYDROCHLOROTHIAZIDE\RAMIPRIL [Suspect]
     Active Substance: HYDROCHLOROTHIAZIDE\RAMIPRIL
     Route: 065
  17. IBUPROFEN [Suspect]
     Active Substance: IBUPROFEN
     Indication: Product used for unknown indication
     Route: 065
  18. IBUPROFEN [Suspect]
     Active Substance: IBUPROFEN
     Route: 065
  19. METOPROLOL SUCCINATE [Interacting]
     Active Substance: METOPROLOL SUCCINATE
     Indication: Product used for unknown indication
     Route: 048
  20. METOPROLOL SUCCINATE [Interacting]
     Active Substance: METOPROLOL SUCCINATE
     Route: 048
  21. RAMIPRIL [Suspect]
     Active Substance: RAMIPRIL
     Indication: Product used for unknown indication
     Route: 065

REACTIONS (6)
  - Parkinsonism [Unknown]
  - Atrioventricular block second degree [Unknown]
  - Toxicity to various agents [Unknown]
  - Bradycardia [Unknown]
  - Confusional state [Unknown]
  - Drug interaction [Unknown]
